FAERS Safety Report 24550958 (Version 6)
Quarter: 2024Q4

REPORT INFORMATION
  Report Type: Report from Study
  Country: AR (occurrence: AR)
  Receive Date: 20241025
  Receipt Date: 20241226
  Transmission Date: 20250115
  Serious: Yes (Hospitalization, Other)
  Sender: NOVARTIS
  Company Number: AR-002147023-NVSC2023AR202264

PATIENT
  Age: 37 Year
  Sex: Male

DRUGS (8)
  1. KESIMPTA [Suspect]
     Active Substance: OFATUMUMAB
     Indication: Multiple sclerosis
     Dosage: 20 MG, QMO
     Route: 058
     Dates: start: 20220802
  2. KESIMPTA [Suspect]
     Active Substance: OFATUMUMAB
     Dosage: 20 MG, QMO
     Route: 058
     Dates: start: 2022
  3. KESIMPTA [Suspect]
     Active Substance: OFATUMUMAB
     Dosage: 20 MG, QMO (ON THE 14TH OF EACH MONTH)
     Route: 058
     Dates: start: 20230614
  4. KESIMPTA [Suspect]
     Active Substance: OFATUMUMAB
     Dosage: UNK
     Route: 058
  5. KESIMPTA [Suspect]
     Active Substance: OFATUMUMAB
     Dosage: UNK, (20MG/0.4 ML), EVERY 30 DAYS
     Route: 058
  6. KESIMPTA [Suspect]
     Active Substance: OFATUMUMAB
     Dosage: 20 MG, QMO
     Route: 058
  7. KESIMPTA [Suspect]
     Active Substance: OFATUMUMAB
     Dosage: 1 SYRINGE, MONTHLY
     Route: 058
  8. KESIMPTA [Suspect]
     Active Substance: OFATUMUMAB
     Dosage: UNK
     Route: 058
     Dates: end: 20240728

REACTIONS (39)
  - Pneumonia [Recovered/Resolved]
  - Oropharyngeal blistering [Unknown]
  - Hypoxia [Unknown]
  - Hypotension [Not Recovered/Not Resolved]
  - Bone disorder [Unknown]
  - Gait inability [Unknown]
  - Feeding disorder [Unknown]
  - Movement disorder [Unknown]
  - Depressed mood [Unknown]
  - Tension [Unknown]
  - Salivary hypersecretion [Not Recovered/Not Resolved]
  - Nasopharyngitis [Unknown]
  - Mastication disorder [Unknown]
  - Respiratory tract infection [Recovered/Resolved]
  - Respiratory symptom [Unknown]
  - Productive cough [Recovering/Resolving]
  - Inflammation [Recovered/Resolved]
  - Aphthous ulcer [Recovered/Resolved]
  - Pyrexia [Recovered/Resolved]
  - Pain [Unknown]
  - Tachycardia [Unknown]
  - Sensory loss [Unknown]
  - Muscular weakness [Recovering/Resolving]
  - Eating disorder [Unknown]
  - Pharyngeal ulceration [Unknown]
  - Muscle rigidity [Recovering/Resolving]
  - Sneezing [Unknown]
  - Cough [Unknown]
  - Speech disorder [Unknown]
  - Feeling abnormal [Unknown]
  - Oropharyngeal pain [Not Recovered/Not Resolved]
  - Oropharyngeal discomfort [Unknown]
  - Product storage error [Unknown]
  - Product distribution issue [Unknown]
  - Throat irritation [Unknown]
  - Weight decreased [Unknown]
  - Oral mucosal blistering [Unknown]
  - Pyrexia [Unknown]
  - Dysphagia [Unknown]

NARRATIVE: CASE EVENT DATE: 20230601
